FAERS Safety Report 11316439 (Version 1)
Quarter: 2015Q3

REPORT INFORMATION
  Report Type: Spontaneous
  Country: US (occurrence: None)
  Receive Date: 20150727
  Receipt Date: 20150727
  Transmission Date: 20151125
  Serious: Yes (Life-Threatening, Hospitalization)
  Sender: FDA-Public Use
  Company Number: None

PATIENT
  Age: 67 Year
  Sex: Male
  Weight: 84 kg

DRUGS (1)
  1. MORPHINE [Suspect]
     Active Substance: MORPHINE
     Route: 042
     Dates: start: 20140809, end: 20140809

REACTIONS (7)
  - Nausea [None]
  - Bradycardia [None]
  - Hyperhidrosis [None]
  - Dizziness [None]
  - Vomiting [None]
  - Hypotension [None]
  - Angina pectoris [None]

NARRATIVE: CASE EVENT DATE: 20140809
